FAERS Safety Report 19943730 (Version 1)
Quarter: 2021Q4

REPORT INFORMATION
  Report Type: Spontaneous
  Country: JP (occurrence: JP)
  Receive Date: 20211012
  Receipt Date: 20211012
  Transmission Date: 20220303
  Serious: Yes (Hospitalization)
  Sender: FDA-Public Use
  Company Number: JP-MYLANLABS-2021M1070542

PATIENT
  Age: 51 Year
  Sex: Male

DRUGS (6)
  1. OLANZAPINE [Suspect]
     Active Substance: OLANZAPINE
     Indication: Depression
     Dosage: 20 MILLIGRAM, QD, ADDED TO ON-GOING PAROXETINE THERAPY
     Route: 065
     Dates: start: 2019
  2. OLANZAPINE [Suspect]
     Active Substance: OLANZAPINE
     Indication: Schizoaffective disorder
  3. PAROXETINE [Suspect]
     Active Substance: PAROXETINE
     Indication: Depression
     Dosage: 40 MILLIGRAM, QD, GRADUALLY DECREASED TO 20 MG/DAY AT THE TIME OF ECT SESSIONS
     Route: 065
  4. PAROXETINE [Suspect]
     Active Substance: PAROXETINE
     Dosage: 20 MILLIGRAM, QD
     Route: 065
  5. BREXPIPRAZOLE [Suspect]
     Active Substance: BREXPIPRAZOLE
     Indication: Depression
     Dosage: 2 MILLIGRAM, QD, ADDED TO ON-GOING PAROXETINE THERAPY
     Route: 065
     Dates: start: 2019
  6. BREXPIPRAZOLE [Suspect]
     Active Substance: BREXPIPRAZOLE
     Indication: Schizoaffective disorder

REACTIONS (2)
  - Drug ineffective [Unknown]
  - Weight increased [Unknown]

NARRATIVE: CASE EVENT DATE: 20190101
